FAERS Safety Report 13009615 (Version 1)
Quarter: 2016Q4

REPORT INFORMATION
  Report Type: Spontaneous
  Country: US (occurrence: US)
  Receive Date: 20161208
  Receipt Date: 20161208
  Transmission Date: 20170207
  Serious: Yes (Other)
  Sender: FDA-Public Use
  Company Number: US-CELGENEUS-USA-2016117996

PATIENT
  Sex: Male

DRUGS (3)
  1. POMALYST [Suspect]
     Active Substance: POMALIDOMIDE
     Indication: HEREDITARY HAEMORRHAGIC TELANGIECTASIA
     Dosage: 1-5 MG
     Route: 048
  2. IRON [Concomitant]
     Active Substance: IRON
     Indication: HEREDITARY HAEMORRHAGIC TELANGIECTASIA
     Route: 041
  3. BLOOD TRANSFUSIONS [Concomitant]
     Active Substance: WHOLE BLOOD
     Indication: HEREDITARY HAEMORRHAGIC TELANGIECTASIA
     Route: 041

REACTIONS (1)
  - Neuroendocrine tumour [Unknown]
